FAERS Safety Report 22373489 (Version 1)
Quarter: 2023Q2

REPORT INFORMATION
  Report Type: Spontaneous
  Country: US (occurrence: None)
  Receive Date: 20230526
  Receipt Date: 20230526
  Transmission Date: 20230722
  Serious: Yes (Other)
  Sender: FDA-Public Use
  Company Number: None

PATIENT
  Sex: Female

DRUGS (1)
  1. EVEROLIMUS [Suspect]
     Active Substance: EVEROLIMUS
     Dosage: FREQUENCY : DAILY;?
     Route: 048

REACTIONS (7)
  - Blood glucose increased [None]
  - Therapy interrupted [None]
  - Drug ineffective [None]
  - Prenatal screening test abnormal [None]
  - Urinary tract infection [None]
  - Bacterial vaginosis [None]
  - Positron emission tomogram abnormal [None]
